FAERS Safety Report 8178470-5 (Version None)
Quarter: 2012Q1

REPORT INFORMATION
  Report Type: 
  Country: None (occurrence: None)
  Receive Date: 20120301
  Receipt Date: 20120217
  Transmission Date: 20120608
  Serious: Yes (Hospitalization)
  Sender: FDA-Public Use
  Company Number: FR-FRI-1000028672

PATIENT
  Sex: Female

DRUGS (11)
  1. QUETIAPINE FUMARATE [Suspect]
     Dosage: 300 MG
     Route: 048
     Dates: start: 20111222
  2. AMLODIPINE BESYLATE [Concomitant]
     Indication: HYPERTENSION
  3. QUETIAPINE FUMARATE [Suspect]
     Dosage: 600 MG
     Route: 048
  4. QUETIAPINE FUMARATE [Suspect]
     Dosage: 400 MG
     Route: 048
  5. ESCITALOPRAM [Suspect]
     Dosage: 20 MG
     Route: 048
     Dates: start: 20111222, end: 20120123
  6. QUETIAPINE FUMARATE [Suspect]
     Dosage: 600 MG
     Route: 048
     Dates: end: 20120123
  7. RISPERDAL [Suspect]
     Dosage: 8 MG
     Route: 048
     Dates: end: 20120123
  8. BISOPROLOL FUMARATE [Concomitant]
     Indication: HYPERTENSION
  9. IRBESARTAN [Concomitant]
     Indication: HYPERTENSION
  10. VALIUM [Suspect]
     Dosage: 10 MG
     Route: 048
     Dates: end: 20120123
  11. ESIDRIX [Concomitant]
     Indication: HYPERTENSION

REACTIONS (4)
  - CONFUSIONAL STATE [None]
  - DRUG INTERACTION [None]
  - BALANCE DISORDER [None]
  - SOMNOLENCE [None]
